FAERS Safety Report 21220424 (Version 1)
Quarter: 2022Q3

REPORT INFORMATION
  Report Type: Spontaneous
  Country: FR (occurrence: FR)
  Receive Date: 20220817
  Receipt Date: 20220817
  Transmission Date: 20221027
  Serious: Yes (Life-Threatening)
  Sender: FDA-Public Use
  Company Number: None

PATIENT
  Age: 64 Year
  Sex: Female

DRUGS (8)
  1. FLUOXETINE [Interacting]
     Active Substance: FLUOXETINE HYDROCHLORIDE
     Indication: Depression
     Dosage: UNIT DOSE :  20MG, FREQUENCY TIME : 1 DAY, THERAPY START DATE : ASKU
     Route: 065
     Dates: end: 20220711
  2. FLUINDIONE [Interacting]
     Active Substance: FLUINDIONE
     Indication: Thrombosis prophylaxis
     Dosage: UNIT DOSE :  25 MG,  DURATION :10 YEARS ,  FREQUENCY TIME : 1 DAY, STRENGTH  : 20 MG, SCORED TABLET
     Route: 065
     Dates: start: 2012, end: 20220711
  3. CALCIUM CARBONATE\CHOLECALCIFEROL [Concomitant]
     Active Substance: CALCIUM CARBONATE\CHOLECALCIFEROL
     Indication: Product used for unknown indication
     Dosage: UNIT DOSE :  1 GRAM, FREQUENCY TIME : 1 DAY, THERAPY START DATE : ASKU
     Dates: end: 20220711
  4. FUROSEMIDE [Concomitant]
     Active Substance: FUROSEMIDE
     Indication: Product used for unknown indication
     Dosage: UNIT DOSE :20MG, FREQUENCY TIME : 1 DAY, THERAPY START DATE : ASKU
     Dates: end: 20220711
  5. RAMIPRIL [Concomitant]
     Active Substance: RAMIPRIL
     Indication: Product used for unknown indication
     Dosage: UNIT DOSE : 2.5MG, FREQUENCY TIME : 1 DAY, THERAPY START DATE : ASKU
     Dates: end: 20220711
  6. ROSUVASTATIN [Concomitant]
     Active Substance: ROSUVASTATIN
     Indication: Product used for unknown indication
     Dosage: UNIT DOSE :  5 MG,  FREQUENCY TIME : 1 DAY, THERAPY START DATE : ASKU
  7. ACETAMINOPHEN [Concomitant]
     Active Substance: ACETAMINOPHEN
     Indication: Product used for unknown indication
     Dosage: UNIT DOSE : 4 GRAM, FREQUENCY TIME : 1 DAY, THERAPY START DATE : ASKU
  8. LEVOTHYROXINE [Concomitant]
     Active Substance: LEVOTHYROXINE
     Indication: Product used for unknown indication
     Dosage: SCORED TABLET, UNIT DOSE : 1 DOSAGE FORM, FREQUENCY TIME : 1 DAY , STRENGTH  : 75MCG, THERAPY START

REACTIONS (2)
  - Cerebral haemorrhage [Recovering/Resolving]
  - Drug interaction [Recovering/Resolving]

NARRATIVE: CASE EVENT DATE: 20220711
